FAERS Safety Report 4805860-8 (Version None)
Quarter: 2005Q4

REPORT INFORMATION
  Report Type: 
  Country: None (occurrence: None)
  Receive Date: 20051019
  Receipt Date: 20051010
  Transmission Date: 20060501
  Serious: Yes (Hospitalization)
  Sender: FDA-Public Use
  Company Number: A-CH2005-10002

PATIENT
  Age: 74 Year
  Sex: Female

DRUGS (5)
  1. TRACLEER [Suspect]
     Indication: SYSTEMIC SCLEROSIS
     Dosage: SEE IMAGE
     Route: 048
     Dates: start: 20050301, end: 20050101
  2. TRACLEER [Suspect]
     Indication: SYSTEMIC SCLEROSIS
     Dosage: SEE IMAGE
     Route: 048
     Dates: start: 20050101
  3. DILTIAZEM HYDROCHLORIDE [Concomitant]
  4. FUROSEMIDE [Concomitant]
  5. COTAREG ^NOVARTIS^ (VALSARTAN, HYDROCHLOROTHIAZIDE) [Concomitant]

REACTIONS (7)
  - ARTERIAL THROMBOSIS LIMB [None]
  - ARTERIOPATHIC DISEASE [None]
  - FEMORAL ARTERIAL STENOSIS [None]
  - INTERMITTENT CLAUDICATION [None]
  - MUSCLE SPASMS [None]
  - PAIN IN EXTREMITY [None]
  - PERIPHERAL COLDNESS [None]
